FAERS Safety Report 19590038 (Version 1)
Quarter: 2021Q3

REPORT INFORMATION
  Report Type: Spontaneous
  Country: US (occurrence: US)
  Receive Date: 20210721
  Receipt Date: 20210721
  Transmission Date: 20211014
  Serious: No
  Sender: FDA-Public Use
  Company Number: US-SA-2021SA233124

PATIENT
  Age: 58 Year
  Sex: Male
  Weight: 88 kg

DRUGS (1)
  1. DUPIXENT [Suspect]
     Active Substance: DUPILUMAB
     Dosage: 300 MG, QOW
     Route: 058
     Dates: start: 202106

REACTIONS (5)
  - Pruritus [Unknown]
  - Therapeutic response shortened [Unknown]
  - Eczema [Unknown]
  - Skin exfoliation [Unknown]
  - Dry skin [Unknown]

NARRATIVE: CASE EVENT DATE: 202107
